FAERS Safety Report 25965749 (Version 2)
Quarter: 2025Q4

REPORT INFORMATION
  Report Type: Report from Study
  Country: US (occurrence: US)
  Receive Date: 20251027
  Receipt Date: 20251104
  Transmission Date: 20260117
  Serious: Yes (Other)
  Sender: ABBVIE
  Company Number: US-ABBVIE-6519792

PATIENT
  Age: 77 Year
  Sex: Male

DRUGS (2)
  1. RESTASIS [Suspect]
     Active Substance: CYCLOSPORINE
     Indication: Dry eye
     Dosage: ROA: OPHTHALMIC
     Route: 065
     Dates: start: 2018
  2. HYDROCODONE [Suspect]
     Active Substance: HYDROCODONE
     Indication: Product used for unknown indication
     Route: 065

REACTIONS (11)
  - Spinal osteoarthritis [Not Recovered/Not Resolved]
  - Hip surgery [Unknown]
  - Knee operation [Unknown]
  - Gait disturbance [Unknown]
  - Paraesthesia [Unknown]
  - Constipation [Unknown]
  - Transurethral prostatectomy [Unknown]
  - Pain in extremity [Recovering/Resolving]
  - Procedural pain [Not Recovered/Not Resolved]
  - Hypoaesthesia [Unknown]
  - Nerve injury [Unknown]

NARRATIVE: CASE EVENT DATE: 20200101
